FAERS Safety Report 8436279-9 (Version None)
Quarter: 2012Q2

REPORT INFORMATION
  Report Type: 
  Country: None (occurrence: None)
  Receive Date: 20120614
  Receipt Date: 20120612
  Transmission Date: 20120825
  Serious: Yes (Other)
  Sender: FDA-Public Use
  Company Number: BR-ROCHE-1077980

PATIENT
  Age: 53 Year
  Sex: Female

DRUGS (2)
  1. RIBAVIRIN [Concomitant]
  2. PEGASYS [Suspect]
     Indication: PRODUCT USED FOR UNKNOWN INDICATION

REACTIONS (2)
  - GINGIVAL BLEEDING [None]
  - EPISTAXIS [None]
